FAERS Safety Report 10011387 (Version 1)
Quarter: 2014Q1

REPORT INFORMATION
  Report Type: Spontaneous
  Country: AT (occurrence: AT)
  Receive Date: 20140314
  Receipt Date: 20140314
  Transmission Date: 20141002
  Serious: Yes (Other)
  Sender: FDA-Public Use
  Company Number: AT-INCYTE CORPORATION-2014IN000585

PATIENT
  Age: 59 Year
  Sex: Female

DRUGS (5)
  1. JAKAVI [Suspect]
     Indication: MYELOFIBROSIS
     Dosage: 20 MG, BID
     Route: 065
  2. JAKAVI [Suspect]
     Dosage: 10 MG, BID
     Route: 048
  3. JAKAVI [Suspect]
     Dosage: 15 MG, BID FOR AROUND 15 MONTHS
     Route: 048
  4. JAKAVI [Suspect]
     Dosage: 20 MG, BID
     Route: 048
  5. JAKAVI [Suspect]
     Dosage: 5 MG, BID
     Route: 048

REACTIONS (4)
  - Splenomegaly [Unknown]
  - Anaemia [Unknown]
  - Drug resistance [Unknown]
  - Platelet count decreased [Unknown]
